FAERS Safety Report 4896070-7 (Version None)
Quarter: 2005Q4

REPORT INFORMATION
  Report Type: 
  Country: None (occurrence: None)
  Receive Date: 20051220
  Receipt Date: 20050413
  Transmission Date: 20060501
  Serious: Yes (Hospitalization)
  Sender: FDA-Public Use
  Company Number: US126922

PATIENT
  Age: 63 Year
  Sex: Female

DRUGS (1)
  1. ENBREL [Suspect]
     Indication: PSORIASIS
     Dosage: 100 MG, 1 IN 1 WEEKS
     Dates: start: 20040201, end: 20050201

REACTIONS (5)
  - DRUG INEFFECTIVE [None]
  - PLEURISY [None]
  - PNEUMONIA [None]
  - RENAL DISORDER [None]
  - SEPTIC SHOCK [None]
